FAERS Safety Report 20504379 (Version 1)
Quarter: 2022Q1

REPORT INFORMATION
  Report Type: Spontaneous
  Country: FR (occurrence: FR)
  Receive Date: 20220222
  Receipt Date: 20220222
  Transmission Date: 20220423
  Serious: Yes (Death, Other)
  Sender: FDA-Public Use
  Company Number: FR-GLAXOSMITHKLINE-FR2020EME174022

PATIENT
  Age: 75 Year
  Sex: Female
  Weight: 77.6 kg

DRUGS (3)
  1. KEPPRA [Suspect]
     Active Substance: LEVETIRACETAM
     Indication: Product used for unknown indication
     Dosage: 750 MILLIGRAM, 2X/DAY (BID)
  2. BELANTAMAB MAFODOTIN [Suspect]
     Active Substance: BELANTAMAB MAFODOTIN
     Indication: Plasma cell myeloma
     Dosage: 2.19 MILLIGRAM/KILOGRAM, UNK
     Route: 042
     Dates: start: 20200618, end: 20200618
  3. BELANTAMAB MAFODOTIN [Suspect]
     Active Substance: BELANTAMAB MAFODOTIN
     Dosage: 2.19 MILLIGRAM/KILOGRAM, UNK
     Dates: start: 20200709, end: 20200709

REACTIONS (6)
  - Confusional state [Fatal]
  - Hyperthermia [Fatal]
  - Staphylococcal sepsis [Fatal]
  - Somnolence [Fatal]
  - Seizure [Unknown]
  - Incorrect dose administered [Unknown]

NARRATIVE: CASE EVENT DATE: 20200719
